FAERS Safety Report 6507976-7 (Version None)
Quarter: 2009Q4

REPORT INFORMATION
  Report Type: 
  Country: None (occurrence: None)
  Receive Date: 20091210
  Receipt Date: 20090831
  Transmission Date: 20100525
  Serious: Yes (Other)
  Sender: FDA-Public Use
  Company Number: CIP08001646

PATIENT
  Age: 72 Year
  Sex: Female

DRUGS (10)
  1. ACTONEL [Suspect]
     Dosage: 35 MG ONCE WEEKLY, ORAL
     Route: 048
     Dates: start: 20030511, end: 20060807
  2. FOSAMAX [Suspect]
     Dosage: 35 MG, ORAL
     Route: 048
     Dates: start: 20010607, end: 20011128
  3. FOSAMAX [Suspect]
     Dosage: 35 MG, ORAL
     Route: 048
     Dates: start: 20020726
  4. PROCARDIA [Concomitant]
  5. GLUCOPHAGE [Concomitant]
  6. MICRONASE [Concomitant]
  7. ENAPRIL (ENALAPRIL) [Concomitant]
  8. LIPITOR [Concomitant]
  9. ACCUPRIL [Concomitant]
  10. ASPIRIN [Concomitant]

REACTIONS (8)
  - BONE EROSION [None]
  - DEVICE FAILURE [None]
  - GINGIVAL DISORDER [None]
  - GINGIVAL PAIN [None]
  - GINGIVAL RECESSION [None]
  - OSTEONECROSIS [None]
  - PAIN IN JAW [None]
  - TOOTHACHE [None]
